FAERS Safety Report 16452445 (Version 1)
Quarter: 2019Q2

REPORT INFORMATION
  Report Type: Report from Study
  Country: US (occurrence: US)
  Receive Date: 20190619
  Receipt Date: 20190619
  Transmission Date: 20190711
  Serious: Yes (Other)
  Sender: FDA-Public Use
  Company Number: US-PFIZER INC-2019255187

PATIENT

DRUGS (1)
  1. SOMATROPIN. [Suspect]
     Active Substance: SOMATROPIN
     Dosage: 10 MG, UNK (SOMATROPIN 10 MG ADMINISTERED WITH THE ZOMAJET)

REACTIONS (2)
  - Injection site reaction [Unknown]
  - Application site pain [Unknown]
